FAERS Safety Report 6886221-7 (Version None)
Quarter: 2010Q3

REPORT INFORMATION
  Report Type: 
  Country: None (occurrence: None)
  Receive Date: 20100729
  Receipt Date: 20080416
  Transmission Date: 20110219
  Serious: No
  Sender: FDA-Public Use
  Company Number: US-PFIZER INC-2008022452

PATIENT
  Age: 44 Year
  Sex: Male

DRUGS (6)
  1. CELEBREX [Suspect]
     Dates: start: 20080201
  2. PERCOCET [Concomitant]
  3. TOFRANIL [Concomitant]
  4. VYTORIN [Concomitant]
  5. TRICOR [Concomitant]
  6. KLONOPIN [Concomitant]

REACTIONS (2)
  - PRURITUS [None]
  - SKIN LESION [None]
